FAERS Safety Report 20964829 (Version 1)
Quarter: 2022Q2

REPORT INFORMATION
  Report Type: Report from Study
  Country: CA (occurrence: CA)
  Receive Date: 20220616
  Receipt Date: 20220616
  Transmission Date: 20220721
  Serious: Yes (Hospitalization, Other)
  Sender: FDA-Public Use
  Company Number: CA-ABBVIE-22K-028-4431300-00

PATIENT
  Sex: Female

DRUGS (2)
  1. HUMIRA [Suspect]
     Active Substance: ADALIMUMAB
     Indication: Crohn^s disease
     Route: 058
     Dates: start: 20100212
  2. HUMIRA [Suspect]
     Active Substance: ADALIMUMAB
     Route: 058

REACTIONS (7)
  - Pneumonia [Recovering/Resolving]
  - Anxiety [Unknown]
  - Fatigue [Unknown]
  - Memory impairment [Unknown]
  - Stress [Unknown]
  - Crohn^s disease [Unknown]
  - Pain [Unknown]

NARRATIVE: CASE EVENT DATE: 20210101
